FAERS Safety Report 12388343 (Version 1)
Quarter: 2016Q2

REPORT INFORMATION
  Report Type: Spontaneous
  Country: US (occurrence: None)
  Receive Date: 20160519
  Receipt Date: 20160519
  Transmission Date: 20160815
  Serious: Yes (Other)
  Sender: FDA-Public Use
  Company Number: None

PATIENT
  Age: 50 Year
  Sex: Female
  Weight: 64.41 kg

DRUGS (4)
  1. ZYRTEC [Concomitant]
     Active Substance: CETIRIZINE HYDROCHLORIDE
  2. RESTASIS [Suspect]
     Active Substance: CYCLOSPORINE
     Indication: DRY EYE
     Dosage: 60 DROPS, TWICE A DAY, INTO THE EYE
     Route: 047
     Dates: start: 20160202, end: 20160320
  3. SINGULAIR [Concomitant]
     Active Substance: MONTELUKAST SODIUM
  4. MULTI VITAMIN [Concomitant]
     Active Substance: VITAMINS

REACTIONS (5)
  - Vision blurred [None]
  - Foreign body sensation in eyes [None]
  - Eye swelling [None]
  - Eye irritation [None]
  - Eye pruritus [None]

NARRATIVE: CASE EVENT DATE: 20160220
